FAERS Safety Report 25688512 (Version 1)
Quarter: 2025Q3

REPORT INFORMATION
  Report Type: Spontaneous
  Country: US (occurrence: US)
  Receive Date: 20250818
  Receipt Date: 20250818
  Transmission Date: 20251021
  Serious: No
  Sender: RECKITT BENCKISER
  Company Number: US-PROD-AS2-212756134-20-24-USA-RB-0009940

PATIENT
  Age: 25 Year
  Sex: Male
  Weight: 92.986 kg

DRUGS (2)
  1. MUCINEX MAXIMUM STRENGTH [Suspect]
     Active Substance: GUAIFENESIN
     Indication: Pulmonary congestion
     Route: 048
     Dates: start: 20241006
  2. MUCINEX MAXIMUM STRENGTH [Suspect]
     Active Substance: GUAIFENESIN
     Indication: Secretion discharge

REACTIONS (9)
  - Dyspnoea [Not Recovered/Not Resolved]
  - Eye pain [Not Recovered/Not Resolved]
  - Facial pain [Not Recovered/Not Resolved]
  - Ear pain [Not Recovered/Not Resolved]
  - Arthralgia [Not Recovered/Not Resolved]
  - Headache [Not Recovered/Not Resolved]
  - Asthenia [Not Recovered/Not Resolved]
  - Feeling cold [Not Recovered/Not Resolved]
  - Influenza [Not Recovered/Not Resolved]

NARRATIVE: CASE EVENT DATE: 20241006
